FAERS Safety Report 9187909 (Version 1)
Quarter: 2013Q1

REPORT INFORMATION
  Report Type: Spontaneous
  Country: US (occurrence: US)
  Receive Date: 20130325
  Receipt Date: 20130325
  Transmission Date: 20140127
  Serious: No
  Sender: FDA-Public Use
  Company Number: US-MYLANLABS-2012S1017412

PATIENT
  Age: 82 Year
  Sex: Female
  Weight: 113.4 kg

DRUGS (4)
  1. FENTANYL TRANSDERMAL SYSTEM [Suspect]
     Indication: BACK PAIN
     Dosage: Q72HR
     Route: 062
     Dates: start: 2011
  2. HYDROCODONE [Concomitant]
     Indication: PAIN
  3. TAMOXIFEN [Concomitant]
     Indication: BREAST CANCER
  4. VITAMIN D [Concomitant]

REACTIONS (5)
  - Dizziness [Recovered/Resolved]
  - Feeling abnormal [Recovered/Resolved]
  - Asthenia [Recovered/Resolved]
  - Application site pruritus [Not Recovered/Not Resolved]
  - Application site erythema [Not Recovered/Not Resolved]
